FAERS Safety Report 7280986-0 (Version None)
Quarter: 2011Q1

REPORT INFORMATION
  Report Type: 
  Country: None (occurrence: None)
  Receive Date: 20110208
  Receipt Date: 20110131
  Transmission Date: 20110831
  Serious: Yes (Death)
  Sender: FDA-Public Use
  Company Number: CHPA2011US01819

PATIENT
  Age: 31 Year
  Sex: Male

DRUGS (5)
  1. ETHANOL [Suspect]
  2. DIPHENHYDRAMINE [Suspect]
  3. ACETAMINOPHEN [Suspect]
     Route: 048
  4. SALICYLATE SODIUM [Suspect]
  5. COUGH AND COLD PREPARATIONS [Suspect]

REACTIONS (2)
  - POISONING [None]
  - COMPLETED SUICIDE [None]
